FAERS Safety Report 20984865 (Version 2)
Quarter: 2022Q3

REPORT INFORMATION
  Report Type: Report from Study
  Country: FR (occurrence: None)
  Receive Date: 20220621
  Receipt Date: 20220713
  Transmission Date: 20221027
  Serious: Yes (Other)
  Sender: FDA-Public Use
  Company Number: FR-ROCHE-3116684

PATIENT
  Age: 72 Year

DRUGS (2)
  1. ATEZOLIZUMAB [Suspect]
     Active Substance: ATEZOLIZUMAB
     Indication: Bladder transitional cell carcinoma
     Dosage: DATE OF LAST ADMINISTRATION BEFORE OCCURRENCE OF EVENT: 23/MAR/2022.
     Route: 042
     Dates: start: 20210401
  2. BCG VACCINE [Suspect]
     Active Substance: BCG VACCINE
     Indication: Bladder transitional cell carcinoma
     Dosage: DATE OF LAST ADMINISTRATION BEFORE OCCURRENCE OF EVENT: 07/DEC/2021.?CUMULATIVE DOSE: 6+3+3 600 ML
     Route: 065
     Dates: start: 20210401

REACTIONS (1)
  - SARS-CoV-2 test positive [Unknown]

NARRATIVE: CASE EVENT DATE: 20220419
